FAERS Safety Report 4349559-3 (Version None)
Quarter: 2004Q1

REPORT INFORMATION
  Report Type: 
  Country: None (occurrence: None)
  Receive Date: 20040329
  Receipt Date: 20031203
  Transmission Date: 20041129
  Serious: No
  Sender: FDA-Public Use
  Company Number: USA031253839

PATIENT
  Age: 10 Year
  Sex: Male
  Weight: 43 kg

DRUGS (1)
  1. STRATTERA [Suspect]
     Indication: ATTENTION DEFICIT/HYPERACTIVITY DISORDER
     Dosage: 60 MG/DAY
     Dates: start: 20031122

REACTIONS (11)
  - ABNORMAL BEHAVIOUR [None]
  - CRYING [None]
  - DYSPEPSIA [None]
  - FATIGUE [None]
  - FEELING ABNORMAL [None]
  - INSOMNIA [None]
  - IRRITABILITY [None]
  - SLEEP DISORDER [None]
  - SLEEP TALKING [None]
  - SOMNOLENCE [None]
  - VOMITING [None]
